FAERS Safety Report 22115392 (Version 1)
Quarter: 2023Q1

REPORT INFORMATION
  Report Type: Spontaneous
  Country: US (occurrence: None)
  Receive Date: 20230318
  Receipt Date: 20230318
  Transmission Date: 20230417
  Serious: Yes (unspecified)
  Sender: FDA-Public Use
  Company Number: None

PATIENT
  Age: 34 Year
  Sex: Female
  Weight: 58.5 kg

DRUGS (3)
  1. TYLENOL PM [Suspect]
     Active Substance: ACETAMINOPHEN\DIPHENHYDRAMINE
     Indication: Nasopharyngitis
     Dosage: OTHER QUANTITY : 1 CAPSULE(S);?FREQUENCY : AS NEEDED;?
     Route: 048
     Dates: start: 20230314, end: 20230315
  2. Traditional Medicinals Throat Coat Tea (as needed) [Concomitant]
  3. Garden of Life Raw Probiotics for Women [Concomitant]

REACTIONS (10)
  - Somnolence [None]
  - Hypopnoea [None]
  - Gait disturbance [None]
  - Syncope [None]
  - Nausea [None]
  - Vision blurred [None]
  - Hyperhidrosis [None]
  - Loss of consciousness [None]
  - Fall [None]
  - Heart rate decreased [None]

NARRATIVE: CASE EVENT DATE: 20230315
